FAERS Safety Report 10085976 (Version 1)
Quarter: 2014Q2

REPORT INFORMATION
  Report Type: Spontaneous
  Country: None (occurrence: None)
  Receive Date: 20140415
  Receipt Date: 20140415
  Transmission Date: 20141212
  Serious: Yes (Death, Hospitalization)
  Sender: FDA-Public Use
  Company Number: 09-AUR-10314

PATIENT
  Age: 87 Year
  Sex: Female

DRUGS (15)
  1. CIPROFLOXACIN [Suspect]
     Indication: PRODUCT USED FOR UNKNOWN INDICATION
     Route: 048
     Dates: start: 20050915, end: 20050922
  2. CEFUROXIME [Suspect]
     Indication: PRODUCT USED FOR UNKNOWN INDICATION
     Dates: start: 20050823, end: 20050830
  3. ZOTON [Suspect]
     Indication: PRODUCT USED FOR UNKNOWN INDICATION
     Dates: start: 20050816, end: 20050920
  4. ASPIRIN (ACETYLSALICYLIC ACID) [Concomitant]
  5. CITALOPRAM (CITALOPRAM) [Concomitant]
  6. CO-AMILOFRUSE (FRUMIL) [Concomitant]
  7. CO-CODAMOL (PANADEINE CO) [Concomitant]
  8. DILTIAZEM (DILTIAZEM) [Concomitant]
  9. FLUCONAZOLE (FLUCONAZOLE) [Concomitant]
  10. IPRATROPIUM (IPRATROPIUM) [Concomitant]
  11. ISOSORBIDE MONONITRATE [Concomitant]
  12. SANDO-K (POTASSIUM CHLORIDE) [Concomitant]
  13. SERETIDE (SERETIDE) [Concomitant]
  14. SODIUM BICARBONATE (SODIUM BICARBONATE) [Concomitant]
  15. TIOTROPIUM BROMIDE (TIOTROPIUM BROMIDE) [Concomitant]

REACTIONS (5)
  - Peritonitis [None]
  - Diarrhoea [None]
  - Clostridium difficile infection [None]
  - General physical health deterioration [None]
  - Intestinal ischaemia [None]
